FAERS Safety Report 8331045-7 (Version None)
Quarter: 2012Q2

REPORT INFORMATION
  Report Type: 
  Country: None (occurrence: None)
  Receive Date: 20120502
  Receipt Date: 20120410
  Transmission Date: 20120825
  Serious: Yes (Other)
  Sender: FDA-Public Use
  Company Number: US-AMGEN-USASP2011054673

PATIENT
  Age: 55 Year
  Sex: Female
  Weight: 110 kg

DRUGS (8)
  1. ENBREL [Suspect]
     Indication: RHEUMATOID ARTHRITIS
     Dosage: 50 MG, QWK
     Route: 058
     Dates: start: 20111019
  2. CYMBALTA [Concomitant]
     Dosage: UNK
  3. TEKTURNA [Concomitant]
     Dosage: UNK
  4. ACYCLOVIR [Concomitant]
     Dosage: UNK
  5. METHOTREXATE [Concomitant]
     Dosage: UNK
     Dates: start: 20110908
  6. PREDNISONE [Concomitant]
     Dosage: UNK
     Dates: start: 20110805
  7. TEMAZEPAM [Concomitant]
     Dosage: UNK
  8. CALCIUM [Concomitant]
     Dosage: UNK

REACTIONS (7)
  - MALAISE [None]
  - HYPERSENSITIVITY [None]
  - THROAT TIGHTNESS [None]
  - HEADACHE [None]
  - HYPOAESTHESIA [None]
  - PARAESTHESIA [None]
  - ANAPHYLACTIC REACTION [None]
